FAERS Safety Report 19036313 (Version 2)
Quarter: 2021Q2

REPORT INFORMATION
  Report Type: Report from Study
  Country: JP (occurrence: JP)
  Receive Date: 20210322
  Receipt Date: 20210402
  Transmission Date: 20210717
  Serious: Yes (Hospitalization, Other)
  Sender: FDA-Public Use
  Company Number: JP-ALXN-A202005207AA

PATIENT
  Age: 54 Year
  Sex: Female
  Weight: 59 kg

DRUGS (19)
  1. SOLIRIS [Suspect]
     Active Substance: ECULIZUMAB
     Dosage: 1200 MG, Q2W
     Route: 042
     Dates: start: 20200324
  2. PREDNISOLONE. [Concomitant]
     Active Substance: PREDNISOLONE
     Indication: PRODUCT USED FOR UNKNOWN INDICATION
     Dosage: UNK
     Route: 065
  3. ROZEREM [Concomitant]
     Active Substance: RAMELTEON
     Indication: MULTIPLE SCLEROSIS
     Dosage: 8 MG, QD
     Route: 048
     Dates: start: 20190620
  4. CALONAL [Concomitant]
     Active Substance: ACETAMINOPHEN
     Indication: MULTIPLE SCLEROSIS
     Dosage: 200 MG, PRN
     Route: 048
     Dates: start: 20190911
  5. PICOSULFATE [Concomitant]
     Active Substance: SODIUM PICOSULFATE
     Indication: MULTIPLE SCLEROSIS
     Dosage: 5 MG, QD
     Route: 048
     Dates: start: 20190801
  6. TRICHLORMETHIAZIDE [Concomitant]
     Active Substance: TRICHLORMETHIAZIDE
     Indication: HYPERTENSION
     Dosage: 1 MG, QD
     Route: 048
     Dates: start: 20190801
  7. SOLIRIS [Suspect]
     Active Substance: ECULIZUMAB
     Indication: NEUROMYELITIS OPTICA SPECTRUM DISORDER
     Dosage: 900 MG, QW
     Route: 042
     Dates: start: 20200225, end: 20200317
  8. FORTEO [Concomitant]
     Active Substance: TERIPARATIDE
     Indication: OSTEOPOROSIS
     Dosage: 20 ?G, QD
     Route: 058
     Dates: start: 20191002
  9. FAMOTIDINE. [Concomitant]
     Active Substance: FAMOTIDINE
     Indication: PROPHYLAXIS
     Dosage: 40 MG, BID
     Route: 048
     Dates: start: 20190801, end: 20200716
  10. CEPHARANTHINE [Concomitant]
     Active Substance: CEPHARANTHINE
     Indication: PROPHYLAXIS
     Dosage: 6 MG, TID
     Route: 048
     Dates: start: 20200507
  11. PREDONINE [Concomitant]
     Active Substance: PREDNISOLONE
     Indication: MULTIPLE SCLEROSIS
     Dosage: 10 MG, QD
     Route: 048
  12. ZOLPIDEM TARTRATE. [Concomitant]
     Active Substance: ZOLPIDEM TARTRATE
     Indication: MULTIPLE SCLEROSIS
     Dosage: 2.5 MG, QD
     Route: 048
  13. TELMISARTAN. [Concomitant]
     Active Substance: TELMISARTAN
     Indication: HYPERTENSION
     Dosage: 40 MG, QD
     Route: 048
     Dates: start: 20191224
  14. XYZAL [Concomitant]
     Active Substance: LEVOCETIRIZINE DIHYDROCHLORIDE
     Indication: PROPHYLAXIS
     Dosage: 5 MG, QD
     Route: 048
     Dates: start: 20190205
  15. AMLODIPINE [Concomitant]
     Active Substance: AMLODIPINE BESYLATE
     Indication: HYPERTENSION
     Dosage: 5 MG, QD
     Route: 048
     Dates: start: 20190719, end: 20200310
  16. EDIROL [Concomitant]
     Active Substance: ELDECALCITOL
     Indication: OSTEOPOROSIS
     Dosage: 0.75 ?G, QD
     Route: 048
     Dates: start: 20191002
  17. GLYCYRON                           /00466401/ [Concomitant]
     Indication: PROPHYLAXIS
     Dosage: 6 DF, TID
     Route: 048
     Dates: start: 20200507
  18. MAGMITT [Concomitant]
     Active Substance: MAGNESIUM OXIDE
     Indication: MULTIPLE SCLEROSIS
     Dosage: 1000 MG, BID
     Route: 048
  19. MIYA?BM [Concomitant]
     Active Substance: CLOSTRIDIUM BUTYRICUM SPORES STRAIN M-55
     Indication: MULTIPLE SCLEROSIS
     Dosage: 3 DF, TID
     Route: 048
     Dates: start: 20191204

REACTIONS (1)
  - Neuromyelitis optica spectrum disorder [Not Recovered/Not Resolved]

NARRATIVE: CASE EVENT DATE: 20210309
